FAERS Safety Report 4629169-0 (Version None)
Quarter: 2005Q2

REPORT INFORMATION
  Report Type: 
  Country: None (occurrence: None)
  Receive Date: 20050407
  Receipt Date: 20050328
  Transmission Date: 20051028
  Serious: Yes (Hospitalization)
  Sender: FDA-Public Use
  Company Number: PHBS2005TW04557

PATIENT
  Age: 80 Year
  Sex: Female
  Weight: 48 kg

DRUGS (1)
  1. EXELON [Suspect]
     Indication: DEMENTIA ALZHEIMER'S TYPE
     Dosage: 3 MG, BID
     Route: 048

REACTIONS (4)
  - HAEMORRHAGE [None]
  - PLATELET COUNT DECREASED [None]
  - VARICES OESOPHAGEAL [None]
  - WHOLE BLOOD TRANSFUSION [None]
